FAERS Safety Report 8209014-7 (Version None)
Quarter: 2012Q1

REPORT INFORMATION
  Report Type: 
  Country: None (occurrence: None)
  Receive Date: 20120314
  Receipt Date: 20120305
  Transmission Date: 20120608
  Serious: Yes (Life-Threatening, Hospitalization)
  Sender: FDA-Public Use
  Company Number: ES-ACTELION-A-CH2012-62157

PATIENT
  Age: 65 Year
  Sex: Male

DRUGS (5)
  1. TRACLEER [Suspect]
     Indication: PULMONARY HYPERTENSION
     Dosage: 125 MG, BID
     Route: 048
  2. VENTAVIS [Concomitant]
     Indication: PULMONARY ARTERIAL HYPERTENSION
  3. ACENOCOUMAROL [Concomitant]
  4. ESPIRONOLACTON [Concomitant]
  5. SILDENAFIL [Concomitant]

REACTIONS (1)
  - HEPATITIS [None]
